FAERS Safety Report 7080095-X (Version None)
Quarter: 2010Q4

REPORT INFORMATION
  Report Type: 
  Country: None (occurrence: None)
  Receive Date: 20101102
  Receipt Date: 20101026
  Transmission Date: 20110411
  Serious: Yes (Hospitalization)
  Sender: FDA-Public Use
  Company Number: US-MERCK-1009USA04009

PATIENT
  Age: 36 Year
  Sex: Female

DRUGS (1)
  1. INVANZ [Suspect]
     Indication: CELLULITIS
     Route: 042
     Dates: start: 20100911

REACTIONS (5)
  - DYSPHAGIA [None]
  - INCORRECT STORAGE OF DRUG [None]
  - SWELLING FACE [None]
  - SWOLLEN TONGUE [None]
  - URTICARIA [None]
